FAERS Safety Report 19397851 (Version 1)
Quarter: 2021Q2

REPORT INFORMATION
  Report Type: Spontaneous
  Country: US (occurrence: US)
  Receive Date: 20210609
  Receipt Date: 20210609
  Transmission Date: 20210717
  Serious: Yes (Life-Threatening)
  Sender: FDA-Public Use
  Company Number: None

PATIENT
  Age: 43 Year
  Sex: Female
  Weight: 122 kg

DRUGS (17)
  1. HEPARIN [Concomitant]
     Active Substance: HEPARIN SODIUM
     Dates: start: 20210524, end: 20210602
  2. IPRATROPIUM ALBUTEROL [Concomitant]
     Active Substance: ALBUTEROL\IPRATROPIUM
     Dates: start: 20210520, end: 20210531
  3. REMDESIVIR. [Suspect]
     Active Substance: REMDESIVIR
     Indication: COVID-19 PNEUMONIA
     Route: 042
     Dates: start: 20210518, end: 20210521
  4. DOXYCYCLINE. [Concomitant]
     Active Substance: DOXYCYCLINE
     Dates: start: 20210520, end: 20210526
  5. GUAIFENESIN. [Concomitant]
     Active Substance: GUAIFENESIN
     Dates: start: 20210520, end: 20210525
  6. DEXAMETHASONE. [Concomitant]
     Active Substance: DEXAMETHASONE
     Dates: start: 20210518, end: 20210520
  7. BUDESONIDE/FORMOTEROL INHALER [Concomitant]
     Active Substance: BUDESONIDE\FORMOTEROL FUMARATE
     Dates: start: 20210520, end: 20210531
  8. NOREPINEPHRINE. [Concomitant]
     Active Substance: NOREPINEPHRINE
     Dates: start: 20210525, end: 20210526
  9. BENZONATATE. [Concomitant]
     Active Substance: BENZONATATE
     Dates: start: 20210518, end: 20210526
  10. DOCUSATE [Concomitant]
     Active Substance: DOCUSATE
     Dates: start: 20210518, end: 20210525
  11. ENOXAPARIN [Concomitant]
     Active Substance: ENOXAPARIN
     Dates: start: 20210518, end: 20210524
  12. METHYLPREDNISOLONE. [Concomitant]
     Active Substance: METHYLPREDNISOLONE
     Dates: start: 20210520, end: 20210527
  13. CEFEPIME [Concomitant]
     Active Substance: CEFEPIME HYDROCHLORIDE
     Dates: start: 20210526, end: 20210531
  14. FUROSEMIDE. [Concomitant]
     Active Substance: FUROSEMIDE
     Dates: start: 20210520, end: 20210604
  15. FENTANYL. [Concomitant]
     Active Substance: FENTANYL
     Dates: start: 20210525, end: 20210609
  16. DOPAMINE [Concomitant]
     Active Substance: DOPAMINE HYDROCHLORIDE
     Dates: start: 20210526, end: 20210602
  17. TOCILIZUMAB. [Concomitant]
     Active Substance: TOCILIZUMAB
     Dates: start: 20210520, end: 20210520

REACTIONS (4)
  - Tachycardia [None]
  - Sinus arrest [None]
  - Acute respiratory failure [None]
  - Bradycardia [None]

NARRATIVE: CASE EVENT DATE: 20210521
